FAERS Safety Report 6817131-9 (Version None)
Quarter: 2010Q3

REPORT INFORMATION
  Report Type: 
  Country: None (occurrence: None)
  Receive Date: 20100706
  Receipt Date: 20100623
  Transmission Date: 20110219
  Serious: Yes (Other)
  Sender: FDA-Public Use
  Company Number: US-BAYER-200942583NA

PATIENT
  Age: 25 Year
  Sex: Female
  Weight: 58 kg

DRUGS (5)
  1. YAZ [Suspect]
     Indication: CONTRACEPTION
     Route: 065
     Dates: start: 20081103, end: 20091001
  2. METHYLPHENIDATE [Concomitant]
     Route: 065
     Dates: start: 20070820, end: 20081028
  3. LORAZEPAM [Concomitant]
     Route: 065
     Dates: start: 20070924, end: 20091113
  4. BUPROPION HCL [Concomitant]
     Route: 065
     Dates: start: 20080202
  5. PAROXETINE HCL [Concomitant]
     Route: 065
     Dates: start: 20050101

REACTIONS (1)
  - CHOLELITHIASIS [None]
